FAERS Safety Report 6212378-7 (Version None)
Quarter: 2009Q2

REPORT INFORMATION
  Report Type: 
  Country: None (occurrence: None)
  Receive Date: 20090603
  Receipt Date: 20090520
  Transmission Date: 20091009
  Serious: Yes (Other)
  Sender: FDA-Public Use
  Company Number: DE-RANBAXY-2009RR-24508

PATIENT
  Sex: Male

DRUGS (1)
  1. TOPIRAMATE [Suspect]

REACTIONS (1)
  - ERECTILE DYSFUNCTION [None]
